FAERS Safety Report 13866678 (Version 2)
Quarter: 2018Q2

REPORT INFORMATION
  Report Type: Spontaneous
  Country: US (occurrence: US)
  Receive Date: 20170814
  Receipt Date: 20180608
  Transmission Date: 20180711
  Serious: No
  Sender: FDA-Public Use
  Company Number: US-ROCHE-1884300

PATIENT
  Age: 38 Year
  Sex: Male

DRUGS (3)
  1. ACTEMRA [Suspect]
     Active Substance: TOCILIZUMAB
     Indication: PRODUCT USED FOR UNKNOWN INDICATION
     Dosage: INJECT 1 ML SUBCUTANEOUSLY EVERY WEEK
     Route: 058
  2. XELJANZ [Suspect]
     Active Substance: TOFACITINIB CITRATE
     Indication: PRODUCT USED FOR UNKNOWN INDICATION
     Route: 065
  3. DILANTIN [Concomitant]
     Active Substance: PHENYTOIN
     Indication: SEIZURE

REACTIONS (7)
  - Lethargy [Unknown]
  - Chest pain [Unknown]
  - Influenza [Unknown]
  - Abdominal discomfort [Unknown]
  - Headache [Unknown]
  - Fatigue [Unknown]
  - Irritable bowel syndrome [Unknown]
